FAERS Safety Report 13372204 (Version 1)
Quarter: 2017Q1

REPORT INFORMATION
  Report Type: Spontaneous
  Country: US (occurrence: US)
  Receive Date: 20170324
  Receipt Date: 20170324
  Transmission Date: 20170429
  Serious: Yes (Death)
  Sender: FDA-Public Use
  Company Number: None

PATIENT
  Sex: Male

DRUGS (1)
  1. NINLARO [Suspect]
     Active Substance: IXAZOMIB
     Indication: PLASMA CELL MYELOMA
     Dosage: ?          OTHER FREQUENCY:EVERY WEEK;?
     Route: 048
     Dates: start: 20160307, end: 20170201

REACTIONS (2)
  - Hip fracture [None]
  - Renal failure [None]
